FAERS Safety Report 9496601 (Version 1)
Quarter: 2013Q3

REPORT INFORMATION
  Report Type: Report from Study
  Country: CA (occurrence: CA)
  Receive Date: 20130904
  Receipt Date: 20130904
  Transmission Date: 20140515
  Serious: Yes (Other)
  Sender: FDA-Public Use
  Company Number: CA-JNJFOC-20130900090

PATIENT
  Age: 80 Year
  Sex: Female
  Weight: 63.6 kg

DRUGS (8)
  1. REMICADE [Suspect]
     Indication: RHEUMATOID ARTHRITIS
     Route: 042
     Dates: start: 20000927
  2. TYLENOL 3 [Concomitant]
     Route: 065
  3. METHOTREXATE [Concomitant]
     Route: 058
  4. FOSAMAX [Concomitant]
     Route: 065
  5. FOLIC ACID [Concomitant]
     Route: 065
  6. CALCIUM AND VITAMIN D [Concomitant]
     Route: 065
  7. ZOCOR [Concomitant]
     Route: 065
  8. COZAAR [Concomitant]
     Route: 065

REACTIONS (1)
  - Gout [Unknown]
